FAERS Safety Report 7541280-3 (Version None)
Quarter: 2011Q2

REPORT INFORMATION
  Report Type: 
  Country: None (occurrence: None)
  Receive Date: 20110610
  Receipt Date: 20110530
  Transmission Date: 20111010
  Serious: Yes (Other)
  Sender: FDA-Public Use
  Company Number: SE-AMGEN-SWESP2011025896

PATIENT
  Age: 66 Year
  Sex: Male
  Weight: 90 kg

DRUGS (7)
  1. PREDNISOLONE [Concomitant]
     Indication: THROMBOCYTOPENIA
  2. SIMVASTATIN [Concomitant]
     Indication: HYPERLIPIDAEMIA
  3. NPLATE [Suspect]
     Dosage: 9 A?G/KG, QWK
     Route: 058
     Dates: start: 20100806
  4. INDERAL [Concomitant]
     Indication: HYPERTENSION
  5. NPLATE [Suspect]
     Indication: IDIOPATHIC THROMBOCYTOPENIC PURPURA
     Dosage: 1 A?G/KG, QWK
     Route: 058
     Dates: start: 20100621
  6. OMEPRAZOLE [Concomitant]
     Indication: DYSPEPSIA
  7. NOVORAPID [Concomitant]
     Indication: DIABETES MELLITUS

REACTIONS (2)
  - BIOPSY BONE MARROW ABNORMAL [None]
  - MYELOPROLIFERATIVE DISORDER [None]
